FAERS Safety Report 17417193 (Version 1)
Quarter: 2020Q1

REPORT INFORMATION
  Report Type: Spontaneous
  Country: US (occurrence: US)
  Receive Date: 20200214
  Receipt Date: 20200214
  Transmission Date: 20200409
  Serious: Yes (Hospitalization)
  Sender: FDA-Public Use
  Company Number: US-JNJFOC-20200211716

PATIENT
  Age: 23 Year
  Sex: Male
  Weight: 67.06 kg

DRUGS (2)
  1. TYLENOL PM [Suspect]
     Active Substance: ACETAMINOPHEN\DIPHENHYDRAMINE
     Indication: SUICIDE ATTEMPT
     Dosage: AT LEAST 10 PARACETAMOL/DIPHENHYDRAMINE HCL  ONCE
     Route: 048
  2. IBUPROFEN. [Suspect]
     Active Substance: IBUPROFEN
     Indication: SUICIDE ATTEMPT
     Dosage: AT LEAST 10 IBUPROFEN
     Route: 048

REACTIONS (3)
  - Transaminases increased [Unknown]
  - Suspected suicide [Unknown]
  - Intentional overdose [Unknown]
